FAERS Safety Report 9676244 (Version 1)
Quarter: 2013Q4

REPORT INFORMATION
  Report Type: Spontaneous
  Country: US (occurrence: US)
  Receive Date: 20131107
  Receipt Date: 20131107
  Transmission Date: 20140711
  Serious: No
  Sender: FDA-Public Use
  Company Number: US-ENDO PHARMACEUTICALS INC.-METC20120004

PATIENT
  Age: 53 Year
  Sex: Female

DRUGS (1)
  1. METHOCARBAMOL TABLETS 500MG [Suspect]
     Indication: MUSCLE SPASMS
     Route: 048
     Dates: start: 20120813, end: 20120813

REACTIONS (2)
  - Nightmare [Recovered/Resolved]
  - Drug diversion [Recovered/Resolved]
